FAERS Safety Report 24662418 (Version 3)
Quarter: 2024Q4

REPORT INFORMATION
  Report Type: Spontaneous
  Country: FR (occurrence: FR)
  Receive Date: 20241125
  Receipt Date: 20241210
  Transmission Date: 20250114
  Serious: Yes (Hospitalization)
  Sender: SANDOZ
  Company Number: FR-ROCHE-10000131421

PATIENT
  Age: 56 Year
  Sex: Female
  Weight: 70 kg

DRUGS (29)
  1. CYCLOPHOSPHAMIDE [Suspect]
     Active Substance: CYCLOPHOSPHAMIDE
     Indication: Non-Hodgkin^s lymphoma
     Dosage: 1287.500MG TIW
     Route: 042
     Dates: start: 20240907
  2. DOXORUBICIN HYDROCHLORIDE [Suspect]
     Active Substance: DOXORUBICIN HYDROCHLORIDE
     Indication: Non-Hodgkin^s lymphoma
     Dosage: 86 MG, TIW
     Route: 042
     Dates: start: 20240906
  3. GLOFITAMAB [Suspect]
     Active Substance: GLOFITAMAB
     Indication: Non-Hodgkin^s lymphoma
     Dosage: DOSE LAST STUDY DRUG ADMIN PRIOR SAE: 30 MG, ON 05-NOV-2024.
     Route: 042
     Dates: start: 20241015
  4. PREDNISONE [Suspect]
     Active Substance: PREDNISONE
     Indication: Non-Hodgkin^s lymphoma
     Dosage: 80 MG, TIW
     Route: 048
     Dates: start: 20240906
  5. BACTRIM [Concomitant]
     Active Substance: SULFAMETHOXAZOLE\TRIMETHOPRIM
     Indication: Product used for unknown indication
     Dosage: QD (FAIBLE)
     Route: 048
     Dates: start: 20240916
  6. COVID-19 vaccine [Concomitant]
     Indication: Product used for unknown indication
     Route: 065
  7. DEXAMETHASONE [Concomitant]
     Active Substance: DEXAMETHASONE
     Indication: Product used for unknown indication
     Dosage: 20.000MG QD
     Route: 048
     Dates: start: 20241105, end: 20241105
  8. DEXAMETHASONE [Concomitant]
     Active Substance: DEXAMETHASONE
     Dosage: 20.000MG QD
     Route: 048
     Dates: start: 20241015, end: 20241015
  9. DEXAMETHASONE [Concomitant]
     Active Substance: DEXAMETHASONE
     Dosage: 20.000MG QD
     Route: 048
     Dates: start: 20241021, end: 20241021
  10. INNOHEP [Concomitant]
     Active Substance: TINZAPARIN SODIUM
     Indication: Product used for unknown indication
     Dosage: 12000.000IU QD
     Route: 058
     Dates: start: 20240902
  11. LEUCOVORIN CALCIUM [Concomitant]
     Active Substance: LEUCOVORIN CALCIUM
     Indication: Product used for unknown indication
     Dosage: 25.000MG
     Route: 048
     Dates: start: 20240916
  12. LORATADINE [Concomitant]
     Active Substance: LORATADINE
     Indication: Product used for unknown indication
     Dosage: 10.000MG QD
     Route: 048
     Dates: start: 20241105, end: 20241105
  13. LORATADINE [Concomitant]
     Active Substance: LORATADINE
     Dosage: 10.000MG QD
     Route: 048
     Dates: start: 20241015, end: 20241015
  14. LORATADINE [Concomitant]
     Active Substance: LORATADINE
     Dosage: 10.000MG QD
     Route: 048
     Dates: start: 20241021, end: 20241021
  15. LORATADINE [Concomitant]
     Active Substance: LORATADINE
     Dosage: 10.000MG QD
     Route: 048
     Dates: start: 20241028, end: 20241028
  16. ONDANSETRON [Concomitant]
     Active Substance: ONDANSETRON
     Indication: Product used for unknown indication
     Dosage: 16.000MG QD
     Route: 042
     Dates: start: 20241028, end: 20241028
  17. PANTOPRAZOLE [Concomitant]
     Active Substance: PANTOPRAZOLE
     Indication: Product used for unknown indication
     Dosage: 16.000MG QD
     Route: 048
     Dates: start: 20240916
  18. ACETAMINOPHEN [Concomitant]
     Active Substance: ACETAMINOPHEN
     Indication: Product used for unknown indication
     Dosage: 1000.000MG QD
     Route: 048
     Dates: start: 20241028, end: 20241028
  19. ACETAMINOPHEN [Concomitant]
     Active Substance: ACETAMINOPHEN
     Dosage: 1000.000MG QD
     Route: 048
     Dates: start: 20241015, end: 20241015
  20. ACETAMINOPHEN [Concomitant]
     Active Substance: ACETAMINOPHEN
     Dosage: 1000.000MG QD
     Route: 048
     Dates: start: 20241021, end: 20241021
  21. ACETAMINOPHEN [Concomitant]
     Active Substance: ACETAMINOPHEN
     Dosage: 1000.000MG QD
     Route: 048
     Dates: start: 20241105, end: 20241105
  22. POLATUZUMAB VEDOTIN [Concomitant]
     Active Substance: POLATUZUMAB VEDOTIN
     Indication: Non-Hodgkin^s lymphoma
     Dosage: 126.000MG TIW
     Route: 042
     Dates: start: 20240906
  23. POLATUZUMAB VEDOTIN [Concomitant]
     Active Substance: POLATUZUMAB VEDOTIN
     Indication: Diffuse large B-cell lymphoma
  24. RITUXIMAB [Concomitant]
     Active Substance: RITUXIMAB
     Indication: Non-Hodgkin^s lymphoma
     Dosage: 645.000MG TIW
     Route: 042
     Dates: start: 20240906
  25. RITUXIMAB [Concomitant]
     Active Substance: RITUXIMAB
     Indication: Diffuse large B-cell lymphoma
  26. RIVOTRIL [Concomitant]
     Active Substance: CLONAZEPAM
     Indication: Restless legs syndrome
     Dosage: DRUG DOSE FIRST ADMINISTERED IS 7 OTHER
     Route: 048
  27. SMECTA [Concomitant]
     Active Substance: MONTMORILLONITE
     Indication: Diarrhoea
     Dosage: UNK
     Route: 048
     Dates: start: 20241005, end: 20241011
  28. VALACYCLOVIR HYDROCHLORIDE [Concomitant]
     Active Substance: VALACYCLOVIR HYDROCHLORIDE
     Indication: Product used for unknown indication
     Dosage: 500.000MG
     Route: 065
     Dates: start: 20240916
  29. VALACYCLOVIR HYDROCHLORIDE [Concomitant]
     Active Substance: VALACYCLOVIR HYDROCHLORIDE
     Dosage: 500.000MG
     Route: 065
     Dates: start: 20240916

REACTIONS (1)
  - Cytokine release syndrome [Recovered/Resolved]

NARRATIVE: CASE EVENT DATE: 20241107
